FAERS Safety Report 13846231 (Version 1)
Quarter: 2017Q3

REPORT INFORMATION
  Report Type: Spontaneous
  Country: US (occurrence: US)
  Receive Date: 20170808
  Receipt Date: 20170808
  Transmission Date: 20171127
  Serious: Yes (Other)
  Sender: FDA-Public Use
  Company Number: US-ROCHE-623923

PATIENT
  Age: 83 Year
  Sex: Female
  Weight: 79.8 kg

DRUGS (5)
  1. BONIVA [Suspect]
     Active Substance: IBANDRONATE SODIUM
     Indication: OSTEOPOROSIS
     Route: 048
     Dates: start: 20080602, end: 200909
  2. METHOTREXATE. [Suspect]
     Active Substance: METHOTREXATE
     Indication: ARTHRITIS
     Route: 065
  3. BONIVA [Suspect]
     Active Substance: IBANDRONATE SODIUM
     Route: 048
  4. BONIVA [Suspect]
     Active Substance: IBANDRONATE SODIUM
     Route: 048
  5. COUMADIN [Concomitant]
     Active Substance: WARFARIN SODIUM
     Route: 065

REACTIONS (8)
  - Tooth extraction [Unknown]
  - Osteonecrosis of jaw [Recovered/Resolved]
  - Toothache [Unknown]
  - Temporomandibular joint syndrome [Recovered/Resolved]
  - Temporomandibular joint syndrome [Recovering/Resolving]
  - Malaise [Unknown]
  - Dental caries [Unknown]
  - Fatigue [Unknown]

NARRATIVE: CASE EVENT DATE: 200901
